FAERS Safety Report 6714851-1 (Version None)
Quarter: 2010Q2

REPORT INFORMATION
  Report Type: 
  Country: None (occurrence: None)
  Receive Date: 20100506
  Receipt Date: 20100506
  Transmission Date: 20101027
  Serious: No
  Sender: FDA-Public Use
  Company Number: None

PATIENT
  Age: 10 Year
  Sex: Male
  Weight: 34.0198 kg

DRUGS (2)
  1. CHILDRENS TYLENOL BUBBLEGUM YUM 150 MG = 5 ML = 1 SP TYLENOL - MCNEIL- [Suspect]
     Indication: INFLUENZA LIKE ILLNESS
     Dosage: 2 TSP 6 HOURS PO
     Route: 048
     Dates: start: 20100405, end: 20100419
  2. CHILDRENS TYLENOL PLUS MULTI SYM 160 MG = 5 ML = 1 TSP TYLENOL - MCNEI [Suspect]
     Indication: INFLUENZA LIKE ILLNESS
     Dosage: 2 TSP BEFORE BED PO
     Route: 048
     Dates: start: 20100412, end: 20100419

REACTIONS (4)
  - DRUG TOXICITY [None]
  - MIDDLE INSOMNIA [None]
  - NO THERAPEUTIC RESPONSE [None]
  - VOMITING [None]
